FAERS Safety Report 14401744 (Version 1)
Quarter: 2018Q1

REPORT INFORMATION
  Report Type: Spontaneous
  Country: JP (occurrence: JP)
  Receive Date: 20180117
  Receipt Date: 20180117
  Transmission Date: 20180509
  Serious: Yes (Death, Life-Threatening, Hospitalization, Other)
  Sender: FDA-Public Use
  Company Number: JP-009507513-1710JPN003280J

PATIENT
  Age: 76 Year
  Sex: Male
  Weight: 45 kg

DRUGS (9)
  1. URSO [Concomitant]
     Active Substance: URSODIOL
     Indication: LIVER DISORDER
     Dosage: 100 MG, TID
     Route: 048
     Dates: start: 20170927
  2. LOXONIN [Concomitant]
     Active Substance: LOXOPROFEN SODIUM
     Indication: TUMOUR ASSOCIATED FEVER
     Dosage: 30 MG, QID
     Route: 048
     Dates: start: 20170927
  3. BAKTAR [Suspect]
     Active Substance: SULFAMETHOXAZOLE\TRIMETHOPRIM
     Indication: PNEUMOCYSTIS JIROVECII PNEUMONIA
     Dosage: UNK
     Route: 048
     Dates: start: 20171111, end: 20171120
  4. CYTOTEC [Concomitant]
     Active Substance: MISOPROSTOL
     Indication: GASTRITIS
     Dosage: 200 MG, QID
     Route: 048
     Dates: start: 20170927
  5. MAGMITT [Concomitant]
     Active Substance: MAGNESIUM OXIDE
     Indication: CONSTIPATION
     Dosage: UNK
     Route: 048
     Dates: start: 20170927
  6. KEYTRUDA [Suspect]
     Active Substance: PEMBROLIZUMAB
     Indication: SQUAMOUS CELL CARCINOMA OF LUNG
     Dosage: 200 MG, Q3W
     Route: 041
     Dates: start: 20170927, end: 20170927
  7. CELECOX [Concomitant]
     Active Substance: CELECOXIB
     Indication: BACK PAIN
     Dosage: 100 MG, BID
     Route: 048
     Dates: start: 20171011
  8. NICHICODE [Concomitant]
     Indication: COUGH
     Dosage: 1 G, TID
     Route: 048
     Dates: start: 20170927
  9. PARIET [Concomitant]
     Active Substance: RABEPRAZOLE SODIUM
     Indication: GASTRITIS
     Dosage: 20 MG, QD
     Route: 048
     Dates: start: 20170927

REACTIONS (4)
  - Pneumonia aspiration [Fatal]
  - Interstitial lung disease [Fatal]
  - Thrombocytopenia [Recovered/Resolved]
  - Spinal compression fracture [Unknown]

NARRATIVE: CASE EVENT DATE: 20171018
